FAERS Safety Report 10616366 (Version 1)
Quarter: 2014Q4

REPORT INFORMATION
  Report Type: Spontaneous
  Country: GB (occurrence: GB)
  Receive Date: 20141201
  Receipt Date: 20141201
  Transmission Date: 20150529
  Serious: Yes (Other)
  Sender: FDA-Public Use
  Company Number: GB-ELI_LILLY_AND_COMPANY-GB201411007623

PATIENT
  Sex: Male

DRUGS (11)
  1. OMEPRAZOL [Concomitant]
     Active Substance: OMEPRAZOLE
  2. BUMETANIDE. [Concomitant]
     Active Substance: BUMETANIDE
  3. PARACETAMOL [Concomitant]
     Active Substance: ACETAMINOPHEN
  4. FINASTERIDE. [Concomitant]
     Active Substance: FINASTERIDE
  5. CYMBALTA [Suspect]
     Active Substance: DULOXETINE HYDROCHLORIDE
     Indication: POLLAKIURIA
  6. PREGABALIN. [Concomitant]
     Active Substance: PREGABALIN
  7. RIVAROXABAN [Concomitant]
     Active Substance: RIVAROXABAN
  8. SPIRONOLACTONE. [Concomitant]
     Active Substance: SPIRONOLACTONE
  9. CYMBALTA [Suspect]
     Active Substance: DULOXETINE HYDROCHLORIDE
     Indication: NEURALGIA
     Dosage: 30MG, ONCE DAILY
     Route: 048
     Dates: start: 201303
  10. TAMSULOSIN [Concomitant]
     Active Substance: TAMSULOSIN
  11. LISINOPRIL. [Concomitant]
     Active Substance: LISINOPRIL

REACTIONS (5)
  - Pulmonary embolism [Unknown]
  - Somnolence [Unknown]
  - Dysphagia [Unknown]
  - Fluid retention [Unknown]
  - Loss of consciousness [Unknown]
